FAERS Safety Report 9632715 (Version 1)
Quarter: 2013Q4

REPORT INFORMATION
  Report Type: Report from Study
  Country: US (occurrence: US)
  Receive Date: 20131018
  Receipt Date: 20131018
  Transmission Date: 20140711
  Serious: Yes (Hospitalization, Other)
  Sender: FDA-Public Use
  Company Number: US-US-EMD SERONO, INC.-7243815

PATIENT
  Age: 42 Year
  Sex: Female

DRUGS (2)
  1. REBIF [Suspect]
     Indication: MULTIPLE SCLEROSIS
     Route: 058
     Dates: start: 20101214
  2. ADVIL                              /00109201/ [Concomitant]
     Indication: PRODUCT USED FOR UNKNOWN INDICATION

REACTIONS (11)
  - Impaired healing [Recovered/Resolved]
  - Fibroadenoma of breast [Recovering/Resolving]
  - Lipoma of breast [Recovered/Resolved]
  - Breast cyst [Recovering/Resolving]
  - Seroma [Recovered/Resolved]
  - Breast abscess [Unknown]
  - Mammary fistula [Recovering/Resolving]
  - Staphylococcal infection [Recovering/Resolving]
  - Staphylococcal infection [Recovering/Resolving]
  - Exostosis [Recovered/Resolved]
  - Bunion [Recovered/Resolved]
